FAERS Safety Report 9513699 (Version 3)
Quarter: 2013Q4

REPORT INFORMATION
  Report Type: Spontaneous
  Country: JP (occurrence: JP)
  Receive Date: 20130910
  Receipt Date: 20131112
  Transmission Date: 20140711
  Serious: No
  Sender: FDA-Public Use
  Company Number: JP-BRISTOL-MYERS SQUIBB COMPANY-19356658

PATIENT
  Age: 58 Year
  Sex: Female

DRUGS (1)
  1. HYDREA CAPS 500 MG [Suspect]
     Indication: ESSENTIAL THROMBOCYTHAEMIA
     Dosage: NOV11 INT AND RES NOV12
     Route: 048
     Dates: start: 199809, end: 201111

REACTIONS (1)
  - Benign renal neoplasm [Unknown]
